FAERS Safety Report 23524483 (Version 1)
Quarter: 2024Q1

REPORT INFORMATION
  Report Type: Spontaneous
  Country: GR (occurrence: GR)
  Receive Date: 20240214
  Receipt Date: 20240214
  Transmission Date: 20240409
  Serious: Yes (Other)
  Sender: FDA-Public Use
  Company Number: GR-OPELLA-2024OHG003105

PATIENT
  Age: 57 Year
  Sex: Female

DRUGS (23)
  1. PREDNISOLONE [Suspect]
     Active Substance: PREDNISOLONE
     Indication: Product used for unknown indication
     Route: 065
  2. IOPROMIDE [Suspect]
     Active Substance: IOPROMIDE
     Indication: Product used for unknown indication
     Route: 065
  3. IOPROMIDE [Suspect]
     Active Substance: IOPROMIDE
     Indication: Product used for unknown indication
     Route: 065
  4. IOPROMIDE [Suspect]
     Active Substance: IOPROMIDE
     Indication: Product used for unknown indication
     Route: 065
  5. CLINDAMYCIN [Suspect]
     Active Substance: CLINDAMYCIN
     Indication: Product used for unknown indication
     Route: 065
  6. CLINDAMYCIN [Suspect]
     Active Substance: CLINDAMYCIN
     Indication: Product used for unknown indication
     Route: 065
  7. CLINDAMYCIN [Suspect]
     Active Substance: CLINDAMYCIN
     Indication: Product used for unknown indication
     Route: 065
  8. METHYLPREDNISOLONE [Suspect]
     Active Substance: METHYLPREDNISOLONE
     Indication: Product used for unknown indication
     Route: 065
  9. CLARITHROMYCIN [Suspect]
     Active Substance: CLARITHROMYCIN
     Indication: Product used for unknown indication
     Route: 065
  10. AMOXICILLIN\CLAVULANIC ACID [Suspect]
     Active Substance: AMOXICILLIN\CLAVULANIC ACID
     Indication: Product used for unknown indication
     Route: 065
  11. HYDROCORTISONE [Suspect]
     Active Substance: HYDROCORTISONE
     Indication: Product used for unknown indication
     Route: 065
  12. HYDROCORTISONE [Suspect]
     Active Substance: HYDROCORTISONE
     Indication: Product used for unknown indication
     Route: 065
  13. HYDROCORTISONE [Suspect]
     Active Substance: HYDROCORTISONE
     Indication: Product used for unknown indication
     Route: 065
  14. LEVOCETIRIZINE HYDROCHLORIDE [Suspect]
     Active Substance: LEVOCETIRIZINE HYDROCHLORIDE
     Indication: Product used for unknown indication
     Route: 065
  15. LEVOCETIRIZINE HYDROCHLORIDE [Suspect]
     Active Substance: LEVOCETIRIZINE HYDROCHLORIDE
     Indication: Product used for unknown indication
     Route: 065
  16. LEVOCETIRIZINE HYDROCHLORIDE [Suspect]
     Active Substance: LEVOCETIRIZINE HYDROCHLORIDE
     Indication: Product used for unknown indication
     Route: 065
  17. IOMEPROL [Suspect]
     Active Substance: IOMEPROL
     Indication: Product used for unknown indication
     Route: 065
  18. IOMEPROL [Suspect]
     Active Substance: IOMEPROL
     Indication: Product used for unknown indication
     Route: 065
  19. IOMEPROL [Suspect]
     Active Substance: IOMEPROL
     Indication: Product used for unknown indication
     Route: 065
  20. IOMEPROL [Suspect]
     Active Substance: IOMEPROL
     Indication: Product used for unknown indication
     Route: 065
  21. IODIXANOL [Suspect]
     Active Substance: IODIXANOL
     Indication: Product used for unknown indication
     Route: 065
  22. IODIXANOL [Suspect]
     Active Substance: IODIXANOL
     Indication: Product used for unknown indication
     Route: 065
  23. IODIXANOL [Suspect]
     Active Substance: IODIXANOL
     Indication: Product used for unknown indication
     Route: 065

REACTIONS (1)
  - Anaphylactic reaction [Unknown]
